FAERS Safety Report 6246242-4 (Version None)
Quarter: 2009Q2

REPORT INFORMATION
  Report Type: 
  Country: None (occurrence: None)
  Receive Date: 20090626
  Receipt Date: 20090623
  Transmission Date: 20091009
  Serious: Yes (Hospitalization, Other)
  Sender: FDA-Public Use
  Company Number: FR-JNJFOC-20090607736

PATIENT
  Age: 46 Year
  Sex: Female

DRUGS (8)
  1. OFLOCET [Suspect]
     Indication: VIRAL INFECTION
     Route: 048
  2. COQUELUSEDAL [Suspect]
     Indication: DRUG USE FOR UNKNOWN INDICATION
     Route: 048
  3. RHINOFLUIMUCIL [Suspect]
     Indication: DRUG USE FOR UNKNOWN INDICATION
     Route: 045
  4. BRONCHODUAL [Suspect]
     Indication: VIRAL INFECTION
     Route: 055
  5. EXOMUC [Suspect]
     Indication: VIRAL INFECTION
     Route: 048
  6. NEOCODION [Suspect]
     Indication: DRUG USE FOR UNKNOWN INDICATION
     Route: 048
  7. HEXAPNEUMINE /01424801/ [Suspect]
     Indication: DRUG USE FOR UNKNOWN INDICATION
     Route: 055
  8. DEPAKENE [Concomitant]
     Indication: EPILEPSY
     Route: 065

REACTIONS (2)
  - EOSINOPHILIA [None]
  - TOXIC SKIN ERUPTION [None]
